FAERS Safety Report 5874841-8 (Version None)
Quarter: 2008Q3

REPORT INFORMATION
  Report Type: 
  Country: None (occurrence: None)
  Receive Date: 20080908
  Receipt Date: 20080908
  Transmission Date: 20090109
  Serious: Yes (Other)
  Sender: FDA-Public Use
  Company Number: None

PATIENT
  Sex: Male

DRUGS (2)
  1. MIRTAZAPINE [Suspect]
  2. VENLAFAXINE HCL [Suspect]

REACTIONS (4)
  - FLUSHING [None]
  - INFLUENZA LIKE ILLNESS [None]
  - SEROTONIN SYNDROME [None]
  - TREMOR [None]
